FAERS Safety Report 6387297-6 (Version None)
Quarter: 2009Q4

REPORT INFORMATION
  Report Type: 
  Country: None (occurrence: None)
  Receive Date: 20091002
  Receipt Date: 20090923
  Transmission Date: 20100525
  Serious: Yes (Disabling, Other)
  Sender: FDA-Public Use
  Company Number: US-MERCK-0902USA00847

PATIENT
  Age: 51 Year
  Sex: Female

DRUGS (3)
  1. FOSAMAX [Suspect]
     Indication: OSTEOPOROSIS
     Route: 048
  2. ACTONEL [Suspect]
     Route: 065
  3. ZOMETA [Suspect]
     Route: 065

REACTIONS (10)
  - ANXIETY [None]
  - DEPRESSION [None]
  - MALOCCLUSION [None]
  - MULTIPLE MYELOMA [None]
  - ORAL FIBROMA [None]
  - OSTEOMYELITIS [None]
  - OSTEONECROSIS [None]
  - PYOGENIC GRANULOMA [None]
  - TOOTH ABSCESS [None]
  - TOOTH DISORDER [None]
